FAERS Safety Report 10096718 (Version 1)
Quarter: 2014Q2

REPORT INFORMATION
  Report Type: Spontaneous
  Country: MX (occurrence: MX)
  Receive Date: 20140422
  Receipt Date: 20140422
  Transmission Date: 20141212
  Serious: Yes (Other)
  Sender: FDA-Public Use
  Company Number: PHHY2014MX048432

PATIENT
  Age: 84 Year
  Sex: Female

DRUGS (1)
  1. CO-DIOVAN [Suspect]
     Indication: HYPERTENSION
     Dosage: 1 DF (160/12.5 MG)
     Route: 048
     Dates: start: 201102

REACTIONS (2)
  - Bladder neoplasm [Recovered/Resolved]
  - Blood urine present [Recovered/Resolved]
